FAERS Safety Report 7789639-3 (Version None)
Quarter: 2011Q3

REPORT INFORMATION
  Report Type: 
  Country: None (occurrence: None)
  Receive Date: 20110930
  Receipt Date: 20110923
  Transmission Date: 20111222
  Serious: Yes (Hospitalization)
  Sender: FDA-Public Use
  Company Number: US-MERCK-1108USA02777

PATIENT
  Age: 70 Year
  Sex: Female
  Weight: 122 kg

DRUGS (9)
  1. LASIX [Concomitant]
     Route: 065
  2. LISINOPRIL [Concomitant]
     Route: 065
  3. VERAPAMIL [Concomitant]
     Route: 048
  4. JANUMET [Suspect]
     Indication: DIABETES MELLITUS
     Route: 048
     Dates: start: 20110726, end: 20110812
  5. LANTUS [Concomitant]
     Route: 065
  6. AMARYL [Concomitant]
     Route: 065
  7. ZOCOR [Concomitant]
     Route: 048
  8. FOLIC ACID [Concomitant]
     Route: 048
  9. ASPIRIN [Concomitant]
     Route: 048

REACTIONS (3)
  - RENAL FAILURE ACUTE [None]
  - DEHYDRATION [None]
  - DIARRHOEA [None]
